FAERS Safety Report 5510311-4 (Version None)
Quarter: 2007Q4

REPORT INFORMATION
  Report Type: 
  Country: None (occurrence: None)
  Receive Date: 20071108
  Receipt Date: 20071102
  Transmission Date: 20080405
  Serious: Yes (Hospitalization)
  Sender: FDA-Public Use
  Company Number: CH-ASTRAZENECA-2007PK02288

PATIENT
  Age: 79 Year
  Sex: Female

DRUGS (8)
  1. TENORMIN SUBMITE [Suspect]
     Route: 048
  2. CO-ENATEC [Suspect]
     Dosage: 20/12.5 MG DAILY
  3. PLAVIX [Concomitant]
     Route: 048
  4. ELTROXIN [Concomitant]
     Route: 048
  5. SORTIS [Concomitant]
     Route: 048
  6. PAROXETINE HCL [Concomitant]
     Route: 048
  7. PANTOPRAZOLE SODIUM [Concomitant]
     Route: 048
  8. FOLVITE [Concomitant]
     Route: 048

REACTIONS (3)
  - DRUG INTERACTION [None]
  - ORTHOSTATIC HYPOTENSION [None]
  - SYNCOPE [None]
